FAERS Safety Report 6779641-2 (Version None)
Quarter: 2010Q2

REPORT INFORMATION
  Report Type: 
  Country: None (occurrence: None)
  Receive Date: 20100618
  Receipt Date: 20100610
  Transmission Date: 20101027
  Serious: Yes (Hospitalization)
  Sender: FDA-Public Use
  Company Number: B0659944A

PATIENT
  Age: 64 Year
  Sex: Male

DRUGS (2)
  1. CLAMOXYL [Suspect]
     Dosage: 1G TWICE PER DAY
     Route: 048
     Dates: start: 20100306, end: 20100313
  2. ZECLAR [Suspect]
     Dosage: 500MG UNKNOWN
     Route: 048
     Dates: start: 20100306, end: 20100313

REACTIONS (4)
  - BLOOD ALBUMIN DECREASED [None]
  - HEPATIC FUNCTION ABNORMAL [None]
  - HEPATOCELLULAR INJURY [None]
  - PROTHROMBIN LEVEL DECREASED [None]
